FAERS Safety Report 8266002-2 (Version None)
Quarter: 2012Q2

REPORT INFORMATION
  Report Type: 
  Country: None (occurrence: None)
  Receive Date: 20120406
  Receipt Date: 20120328
  Transmission Date: 20120825
  Serious: Yes (Hospitalization, Congenital Anomaly, Other)
  Sender: FDA-Public Use
  Company Number: US-FRI-1000028153

PATIENT
  Sex: Male

DRUGS (8)
  1. PEPCID [Concomitant]
     Route: 064
     Dates: start: 20051230, end: 20060126
  2. CALCIUM CARBONATE [Concomitant]
     Route: 064
  3. PRENATE ELITE [Concomitant]
     Route: 064
     Dates: end: 20060324
  4. ROLAIDS [Concomitant]
     Route: 064
  5. TYLENOL [Concomitant]
     Route: 064
  6. PRILOSEC [Concomitant]
     Route: 064
  7. LEXAPRO [Suspect]
     Route: 064
     Dates: end: 20060324
  8. PREVACID [Concomitant]
     Route: 064
     Dates: start: 20060126

REACTIONS (11)
  - DILATATION VENTRICULAR [None]
  - MICROCEPHALY [None]
  - PHIMOSIS [None]
  - DEHYDRATION [None]
  - SPINA BIFIDA [None]
  - ARNOLD-CHIARI MALFORMATION [None]
  - HYDROCELE [None]
  - HYPOGLYCAEMIA [None]
  - EPILEPSY [None]
  - HYDROCEPHALUS [None]
  - HYPOTENSION [None]
